FAERS Safety Report 9250544 (Version 1)
Quarter: 2013Q1

REPORT INFORMATION
  Report Type: Spontaneous
  Country: US (occurrence: None)
  Receive Date: 20130305
  Receipt Date: 20130305
  Transmission Date: 20140127
  Serious: Yes (Other)
  Sender: FDA-Public Use
  Company Number: 163-21880-12081649

PATIENT
  Age: 79 Year
  Sex: Female
  Weight: 76.2 kg

DRUGS (12)
  1. REVLIMID (LENALIDOMIDE) [Suspect]
     Indication: PLASMA CELL MYELOMA
     Dosage: 5MG, 1 IN 1 D, PO
     Route: 048
     Dates: start: 20090120
  2. CALCITRIOL [Concomitant]
  3. EVISTA [Concomitant]
  4. LASIX (FUROSEMIDE) [Concomitant]
  5. NEXIUM [Concomitant]
  6. NORVASC (AMLODIPINE BESILATE) [Concomitant]
  7. POTASSIUM (POTASSIUM) [Concomitant]
  8. PRILOSEC [Concomitant]
  9. SYNTHROID (LEVOTHYROXINE SODIUM) [Concomitant]
  10. VITAMIN D (ERGOCALCIFEROL) [Concomitant]
  11. WELCHOL (COLESEVELAM HYDROCHLORIDE) [Concomitant]
  12. PREVACID (LANSOPRAZOLE) [Concomitant]

REACTIONS (4)
  - Diarrhoea [None]
  - Pruritus [None]
  - Dry skin [None]
  - Dry skin [None]
